FAERS Safety Report 26214421 (Version 1)
Quarter: 2025Q4

REPORT INFORMATION
  Report Type: Spontaneous
  Country: US (occurrence: US)
  Receive Date: 20251230
  Receipt Date: 20251230
  Transmission Date: 20260118
  Serious: Yes (Death, Other)
  Sender: TAKEDA
  Company Number: US-TAKEDA-2025TUS118403

PATIENT
  Sex: Male

DRUGS (1)
  1. VONVENDI [Suspect]
     Active Substance: VON WILLEBRAND FACTOR (RECOMBINANT)
     Indication: Product used for unknown indication
     Dosage: UNK

REACTIONS (8)
  - Death [Fatal]
  - Liver injury [Unknown]
  - Hyperbilirubinaemia [Unknown]
  - Metabolic dysfunction-associated steatohepatitis [Unknown]
  - General physical health deterioration [Unknown]
  - Transaminases increased [Unknown]
  - Hepatic function abnormal [Recovering/Resolving]
  - Pulse abnormal [Unknown]

NARRATIVE: CASE EVENT DATE: 20251217
